FAERS Safety Report 5371935-0 (Version None)
Quarter: 2007Q2

REPORT INFORMATION
  Report Type: 
  Country: None (occurrence: None)
  Receive Date: 20070625
  Receipt Date: 20070612
  Transmission Date: 20071010
  Serious: Yes (Hospitalization)
  Sender: FDA-Public Use
  Company Number: 2007US001195

PATIENT
  Age: 58 Year
  Sex: Female

DRUGS (3)
  1. AMEVIVE [Suspect]
     Indication: PSORIASIS
     Dosage: 15 MG, WEEKLY INTRAMUSCULAR
     Route: 030
     Dates: start: 20061218, end: 20070404
  2. NEXIUM [Concomitant]
  3. ESTROGENS NOS (ESTROGENS NOS) [Concomitant]

REACTIONS (1)
  - DIVERTICULITIS [None]
